APPROVED DRUG PRODUCT: IMATINIB MESYLATE
Active Ingredient: IMATINIB MESYLATE
Strength: EQ 100MG BASE
Dosage Form/Route: TABLET;ORAL
Application: A207586 | Product #001
Applicant: HIKMA PHARMACEUTICALS USA INC
Approved: Jul 13, 2018 | RLD: No | RS: No | Type: DISCN